FAERS Safety Report 18877813 (Version 1)
Quarter: 2021Q1

REPORT INFORMATION
  Report Type: Spontaneous
  Country: US (occurrence: US)
  Receive Date: 20210210
  Receipt Date: 20210210
  Transmission Date: 20210420
  Serious: No
  Sender: FDA-Public Use
  Company Number: None

PATIENT
  Age: 64 Year
  Sex: Male
  Weight: 62.6 kg

DRUGS (1)
  1. NITROFURANTOIN MONOHYDRATE MACROCRYSTALS [Suspect]
     Active Substance: NITROFURANTOIN\NITROFURANTOIN MONOHYDRATE
     Indication: URINARY TRACT INFECTION
     Route: 048
     Dates: start: 20171101, end: 20180605

REACTIONS (10)
  - Pyrexia [None]
  - Gallbladder enlargement [None]
  - Vomiting [None]
  - Hepatic enzyme increased [None]
  - International normalised ratio abnormal [None]
  - Nausea [None]
  - Abdominal pain upper [None]
  - Drug-induced liver injury [None]
  - Decreased appetite [None]
  - Autoimmune hepatitis [None]

NARRATIVE: CASE EVENT DATE: 20180529
